FAERS Safety Report 18436641 (Version 1)
Quarter: 2020Q4

REPORT INFORMATION
  Report Type: Spontaneous
  Country: GB (occurrence: GB)
  Receive Date: 20201028
  Receipt Date: 20201028
  Transmission Date: 20210114
  Serious: Yes (Other)
  Sender: FDA-Public Use
  Company Number: GB-TEVA-2020-GB-1842765

PATIENT
  Age: 85 Year
  Sex: Female
  Weight: 72.55 kg

DRUGS (19)
  1. CIPROFLOXACIN. [Concomitant]
     Active Substance: CIPROFLOXACIN
  2. BUMETANIDE. [Concomitant]
     Active Substance: BUMETANIDE
  3. CYCLIZINE [Concomitant]
     Active Substance: CYCLIZINE
  4. FLUOXETINE [Concomitant]
     Active Substance: FLUOXETINE HYDROCHLORIDE
  5. FLUCONAZOLE. [Concomitant]
     Active Substance: FLUCONAZOLE
  6. INSULIN [Concomitant]
     Active Substance: INSULIN NOS
  7. METRONIDAZOLE. [Concomitant]
     Active Substance: METRONIDAZOLE
  8. LEVOTHYROXINE. [Concomitant]
     Active Substance: LEVOTHYROXINE
  9. ACETYLSALICYLIC ACID [Concomitant]
     Active Substance: ASPIRIN
  10. MORPHINE [Concomitant]
     Active Substance: MORPHINE
  11. CEFALEXIN [Concomitant]
     Active Substance: CEPHALEXIN
  12. PARACETAMOL [Concomitant]
     Active Substance: ACETAMINOPHEN
  13. FILGRASTIM [Suspect]
     Active Substance: FILGRASTIM
     Indication: NEUTROPENIA
     Dosage: 480 MG
     Route: 058
     Dates: start: 20200916, end: 20200919
  14. NIZATIDINE. [Concomitant]
     Active Substance: NIZATIDINE
  15. OMEPRAZOLE. [Concomitant]
     Active Substance: OMEPRAZOLE
  16. CASSIA [Concomitant]
  17. HYDROCORTISONE. [Concomitant]
     Active Substance: HYDROCORTISONE
  18. ONDANSETRON HYDROCHLORIDE. [Concomitant]
     Active Substance: ONDANSETRON HYDROCHLORIDE
  19. LINAGLIPTIN [Concomitant]
     Active Substance: LINAGLIPTIN

REACTIONS (2)
  - Oesophageal varices haemorrhage [Unknown]
  - Thrombocytopenia [Not Recovered/Not Resolved]

NARRATIVE: CASE EVENT DATE: 20200918
